FAERS Safety Report 7005453-0 (Version None)
Quarter: 2010Q3

REPORT INFORMATION
  Report Type: 
  Country: None (occurrence: None)
  Receive Date: 20100921
  Receipt Date: 20100914
  Transmission Date: 20110219
  Serious: Yes (Death)
  Sender: FDA-Public Use
  Company Number: CO-ROCHE-725724

PATIENT
  Sex: Female

DRUGS (3)
  1. CELLCEPT [Suspect]
     Indication: HEART TRANSPLANT
     Dosage: FREQUENCY: QD.
     Route: 048
     Dates: start: 20090619, end: 20100813
  2. TACROLIMUS [Concomitant]
     Indication: HEART TRANSPLANT
     Dosage: FREQUENCY: QD
     Route: 048
  3. ENALAPRIL [Concomitant]
     Indication: HEART TRANSPLANT
     Dosage: FREQUENCY: QD
     Route: 048

REACTIONS (1)
  - CARDIOPULMONARY FAILURE [None]
